FAERS Safety Report 10184164 (Version 1)
Quarter: 2014Q2

REPORT INFORMATION
  Report Type: Spontaneous
  Country: US (occurrence: US)
  Receive Date: 20140520
  Receipt Date: 20140520
  Transmission Date: 20141212
  Serious: Yes (Hospitalization, Other)
  Sender: FDA-Public Use
  Company Number: US-PFIZER INC-2014133469

PATIENT
  Age: 47 Year
  Sex: Female

DRUGS (6)
  1. LEVOTHYROXINE SODIUM [Suspect]
     Indication: PRIMARY HYPOTHYROIDISM
     Dosage: UNK
  2. LEVOTHYROXINE SODIUM [Suspect]
     Dosage: 100 G, DAILY
  3. POTASSIUM CHLORIDE [Concomitant]
     Indication: HYPERKALAEMIA
     Dosage: 25 MEQ, 2X/DAY
  4. SPIRONOLACTONE [Concomitant]
     Dosage: 25 MG, DAILY
  5. SPIRONOLACTONE [Concomitant]
     Dosage: 50 MG, DAILY
  6. PROPRANOLOL [Concomitant]
     Dosage: UNK

REACTIONS (3)
  - Familial periodic paralysis [Recovered/Resolved]
  - Hyperthyroidism [Unknown]
  - Incorrect dose administered [Unknown]
